FAERS Safety Report 8815876 (Version 2)
Quarter: 2012Q4

REPORT INFORMATION
  Report Type: 
  Country: US (occurrence: US)
  Receive Date: 20120928
  Receipt Date: 20121009
  Transmission Date: 20130627
  Serious: Yes (Hospitalization)
  Sender: FDA-Public Use
  Company Number: US-009507513-1209USA011493

PATIENT
  Sex: Female

DRUGS (1)
  1. INTEGRILIN [Suspect]
     Dosage: UNK
     Route: 042
     Dates: start: 20120925

REACTIONS (2)
  - Extravasation [Unknown]
  - Swelling [Unknown]
